FAERS Safety Report 5248038-9 (Version None)
Quarter: 2007Q1

REPORT INFORMATION
  Report Type: 
  Country: None (occurrence: None)
  Receive Date: 20070227
  Receipt Date: 20070215
  Transmission Date: 20070707
  Serious: Yes (Hospitalization)
  Sender: FDA-Public Use
  Company Number: FR-SANOFI-SYNTHELABO-A02200700506

PATIENT
  Age: 83 Year
  Sex: Male

DRUGS (3)
  1. ALEPSAL [Suspect]
     Indication: EPILEPSY
     Route: 048
  2. ISOBAR [Suspect]
     Indication: HYPERTENSION
     Route: 048
     Dates: end: 20061024
  3. PLAVIX [Suspect]
     Indication: DRUG USE FOR UNKNOWN INDICATION
     Route: 048

REACTIONS (6)
  - BLOOD IMMUNOGLOBULIN E INCREASED [None]
  - CHOLESTASIS [None]
  - EOSINOPHILIA [None]
  - LEUKOCYTOSIS [None]
  - NORMOCHROMIC NORMOCYTIC ANAEMIA [None]
  - PHOTOSENSITIVITY REACTION [None]
